FAERS Safety Report 16753420 (Version 1)
Quarter: 2019Q3

REPORT INFORMATION
  Report Type: Spontaneous
  Country: US (occurrence: US)
  Receive Date: 20190829
  Receipt Date: 20190829
  Transmission Date: 20191005
  Serious: No
  Sender: FDA-Public Use
  Company Number: US-009507513-1908USA000600

PATIENT
  Sex: Male

DRUGS (2)
  1. SIMVASTATIN. [Suspect]
     Active Substance: SIMVASTATIN
     Dosage: CUT TABLETS TO ACHIEVE A 40MG DOSE
     Dates: start: 2004
  2. ZOCOR [Suspect]
     Active Substance: SIMVASTATIN
     Dosage: CUT TABLETS TO ACHIEVE A 40MG DOSE
     Dates: start: 2004

REACTIONS (2)
  - No adverse event [Unknown]
  - Wrong technique in product usage process [Unknown]

NARRATIVE: CASE EVENT DATE: 2004
